FAERS Safety Report 7293240-8 (Version None)
Quarter: 2011Q1

REPORT INFORMATION
  Report Type: 
  Country: None (occurrence: None)
  Receive Date: 20110210
  Receipt Date: 20110210
  Transmission Date: 20110831
  Serious: Yes (Other)
  Sender: FDA-Public Use
  Company Number: None

PATIENT
  Age: 54 Year
  Sex: Female
  Weight: 53.0709 kg

DRUGS (2)
  1. BOTOX [Suspect]
     Indication: SKIN COSMETIC PROCEDURE
     Dates: start: 20101111, end: 20101111
  2. BOTOX [Suspect]
     Indication: SKIN WRINKLING
     Dates: start: 20101111, end: 20101111

REACTIONS (8)
  - DEPRESSION [None]
  - FACIAL PARESIS [None]
  - CUTIS LAXA [None]
  - OFF LABEL USE [None]
  - EMOTIONAL DISTRESS [None]
  - SENSORY DISTURBANCE [None]
  - HYPOTONIA [None]
  - VIITH NERVE INJURY [None]
